FAERS Safety Report 23678060 (Version 5)
Quarter: 2025Q4

REPORT INFORMATION
  Report Type: Report from Study
  Country: US (occurrence: US)
  Receive Date: 20240327
  Receipt Date: 20251218
  Transmission Date: 20260118
  Serious: Yes (Other)
  Sender: PFIZER
  Company Number: US-PFIZER INC-PV202200049705

PATIENT
  Age: 55 Year
  Sex: Female
  Weight: 70.31 kg

DRUGS (2)
  1. PREMPRO [Suspect]
     Active Substance: ESTROGENS, CONJUGATED\MEDROXYPROGESTERONE ACETATE
     Indication: Night sweats
     Dosage: UNK, 1X/DAY (1.5 TO 3.0 MILLIGRAM)
     Dates: start: 202208
  2. PREMPRO [Suspect]
     Active Substance: ESTROGENS, CONJUGATED\MEDROXYPROGESTERONE ACETATE
     Indication: Hot flush

REACTIONS (3)
  - Drug dependence [Unknown]
  - Feeling abnormal [Unknown]
  - Product prescribing error [Unknown]
